FAERS Safety Report 15570096 (Version 1)
Quarter: 2018Q4

REPORT INFORMATION
  Report Type: Spontaneous
  Country: FR (occurrence: FR)
  Receive Date: 20181031
  Receipt Date: 20181031
  Transmission Date: 20190205
  Serious: Yes (Hospitalization, Other)
  Sender: FDA-Public Use
  Company Number: FR-AUROBINDO-AUR-APL-2018-052507

PATIENT
  Age: 66 Year
  Sex: Female
  Weight: 71 kg

DRUGS (13)
  1. FLUCONAZOLE. [Suspect]
     Active Substance: FLUCONAZOLE
     Indication: ORAL CANDIDIASIS
     Dosage: 100 MILLIGRAM, DAILY (LE MATIN)
     Route: 048
     Dates: start: 20180821, end: 20180915
  2. TARDYFERON [Concomitant]
     Active Substance: FERROUS SULFATE
     Indication: ANAEMIA
     Dosage: 80 MILLIGRAM, DAILY (LE MATIN)
     Route: 048
  3. LEVOFLOXACIN. [Suspect]
     Active Substance: LEVOFLOXACIN
     Indication: STERNITIS
     Dosage: 750 MILLIGRAM, DAILY (LE MATIN)
     Route: 048
     Dates: start: 20180821, end: 20180915
  4. EUPRESSYL                          /00631801/ [Concomitant]
     Active Substance: URAPIDIL
     Indication: MYOCARDIAL ISCHAEMIA
     Dosage: 60 MILLIGRAM, DAILY (MATIN ET SOIR)
     Route: 048
  5. BISOPROLOL [Suspect]
     Active Substance: BISOPROLOL
     Indication: MYOCARDIAL ISCHAEMIA
     Dosage: 1.25 MILLIGRAM, DAILY (LE MATIN)
     Route: 048
     Dates: start: 201807
  6. CANDESARTAN. [Suspect]
     Active Substance: CANDESARTAN
     Indication: MYOCARDIAL ISCHAEMIA
     Dosage: 16 MILLIGRAM, DAILY (LE MATIN)
     Route: 048
     Dates: start: 201807
  7. PRAVASTATIN SODIUM. [Concomitant]
     Active Substance: PRAVASTATIN SODIUM
     Indication: DYSLIPIDAEMIA
     Dosage: 40 MILLIGRAM, DAILY (LE SOIR)
     Route: 048
  8. AMLODIPINE [Concomitant]
     Active Substance: AMLODIPINE BESYLATE
     Indication: MYOCARDIAL ISCHAEMIA
     Dosage: 10 MILLIGRAM, DAILY (LE MATIN)
     Route: 048
  9. PANTOPRAZOLE [Suspect]
     Active Substance: PANTOPRAZOLE
     Indication: PRODUCT USED FOR UNKNOWN INDICATION
     Dosage: 40 MILLIGRAM, DAILY (LE SOIR)
     Route: 048
     Dates: start: 20180910, end: 20180915
  10. GALVUS [Suspect]
     Active Substance: VILDAGLIPTIN
     Indication: TYPE 2 DIABETES MELLITUS
     Dosage: 50 MILLIGRAM, DAILY (50 MG LE MATIN)
     Route: 048
     Dates: start: 20180821
  11. BACTRIM [Suspect]
     Active Substance: SULFAMETHOXAZOLE\TRIMETHOPRIM
     Indication: STERNITIS
     Dosage: 2 DOSAGE FORM, DAILY (800+160 MG MATIN ET SOIR)
     Route: 048
     Dates: start: 20180821, end: 20180915
  12. LEVOTHYROX [Concomitant]
     Active Substance: LEVOTHYROXINE
     Indication: THYROIDECTOMY
     Dosage: 175 MICROGRAM, DAILY (LE MATIN)
     Route: 048
  13. KARDEGIC [Concomitant]
     Active Substance: ASPIRIN DL-LYSINE
     Indication: ARTERIOSCLEROSIS
     Dosage: 75 MILLIGRAM, DAILY (75 MG LE MATIN)
     Route: 048

REACTIONS (1)
  - Pancytopenia [Recovered/Resolved]

NARRATIVE: CASE EVENT DATE: 20180914
